FAERS Safety Report 18364838 (Version 1)
Quarter: 2020Q4

REPORT INFORMATION
  Report Type: Spontaneous
  Country: GB (occurrence: GB)
  Receive Date: 20201009
  Receipt Date: 20201009
  Transmission Date: 20210114
  Serious: Yes (Other)
  Sender: FDA-Public Use
  Company Number: GB-ACCORD-204534

PATIENT
  Age: 70 Year
  Sex: Female
  Weight: 71 kg

DRUGS (7)
  1. AMLODIPINE [Concomitant]
     Active Substance: AMLODIPINE BESYLATE
     Dates: start: 20200708
  2. MENTHA X PIPERITA [Concomitant]
     Active Substance: HERBALS
     Dates: start: 20200709
  3. AMITRIPTYLINE [Suspect]
     Active Substance: AMITRIPTYLINE
     Indication: HEADACHE
     Dosage: AT NIGHT
     Dates: start: 20200914
  4. PROPRANOLOL [Concomitant]
     Active Substance: PROPRANOLOL HYDROCHLORIDE
     Dates: start: 20200207, end: 20200907
  5. LEVOTHYROXINE. [Concomitant]
     Active Substance: LEVOTHYROXINE
     Dosage: BEFORE BREAKFAST
     Dates: start: 20190215
  6. COLECALCIFEROL [Concomitant]
     Active Substance: CHOLECALCIFEROL
     Dates: start: 20200917
  7. HYPROMELLOSE/HYPROMELLOSE PHTHALATE [Concomitant]
     Dosage: 1-2 DROPS 3 TIMES/DAY
     Dates: start: 20200625

REACTIONS (3)
  - Somnolence [Unknown]
  - Balance disorder [Unknown]
  - Dizziness [Recovered/Resolved]

NARRATIVE: CASE EVENT DATE: 20200917
